FAERS Safety Report 25547158 (Version 2)
Quarter: 2025Q3

REPORT INFORMATION
  Report Type: Spontaneous
  Country: EU (occurrence: EU)
  Receive Date: 20250714
  Receipt Date: 20250723
  Transmission Date: 20251020
  Serious: Yes (Other)
  Sender: SANOFI AVENTIS
  Company Number: None

PATIENT
  Age: 42 Year
  Sex: Female

DRUGS (16)
  1. ARAVA [Suspect]
     Active Substance: LEFLUNOMIDE
     Indication: Rheumatoid arthritis
     Dosage: 20 MG, QD
     Route: 048
     Dates: start: 202111
  2. ARAVA [Suspect]
     Active Substance: LEFLUNOMIDE
     Dates: start: 202201, end: 202401
  3. ARAVA [Suspect]
     Active Substance: LEFLUNOMIDE
     Dates: start: 202201, end: 202405
  4. PREDNISONE [Suspect]
     Active Substance: PREDNISONE
     Indication: Rheumatoid arthritis
     Route: 048
     Dates: start: 2020
  5. PREDNISONE [Suspect]
     Active Substance: PREDNISONE
     Dosage: 1.5 DF, QD
     Route: 048
     Dates: start: 20210616
  6. PREDNISONE [Suspect]
     Active Substance: PREDNISONE
     Dosage: 1 DF
     Route: 048
     Dates: start: 20210616
  7. PREDNISONE [Suspect]
     Active Substance: PREDNISONE
     Dosage: 0.5 DF, QD
     Route: 048
     Dates: start: 20210616
  8. ORENCIA [Suspect]
     Active Substance: ABATACEPT
     Indication: Rheumatoid arthritis
     Dosage: 125 MG, QW
     Route: 042
     Dates: start: 202405
  9. BETAMETHASONE DIPROPIONATE\BETAMETHASONE SODIUM PHOSPHATE [Concomitant]
     Active Substance: BETAMETHASONE DIPROPIONATE\BETAMETHASONE SODIUM PHOSPHATE
     Dates: start: 202212
  10. BETAMETHASONE DIPROPIONATE\BETAMETHASONE SODIUM PHOSPHATE [Concomitant]
     Active Substance: BETAMETHASONE DIPROPIONATE\BETAMETHASONE SODIUM PHOSPHATE
     Dates: start: 2022
  11. BETAMETHASONE DIPROPIONATE\BETAMETHASONE SODIUM PHOSPHATE [Concomitant]
     Active Substance: BETAMETHASONE DIPROPIONATE\BETAMETHASONE SODIUM PHOSPHATE
     Dates: start: 202108
  12. BETAMETHASONE DIPROPIONATE\BETAMETHASONE SODIUM PHOSPHATE [Concomitant]
     Active Substance: BETAMETHASONE DIPROPIONATE\BETAMETHASONE SODIUM PHOSPHATE
     Dates: start: 202104
  13. KETOPROFEN [Concomitant]
     Active Substance: KETOPROFEN
     Indication: Rheumatoid arthritis
  14. ADALIMUMAB [Concomitant]
     Active Substance: ADALIMUMAB
     Dates: start: 202401, end: 202405
  15. ETANERCEPT [Concomitant]
     Active Substance: ETANERCEPT
     Dates: start: 202201, end: 202401
  16. KYLEENA [Concomitant]
     Active Substance: LEVONORGESTREL

REACTIONS (5)
  - Foot fracture [Recovering/Resolving]
  - Multiple fractures [Unknown]
  - Fall [Recovered/Resolved]
  - Ligament sprain [Unknown]
  - Osteoporosis [Unknown]

NARRATIVE: CASE EVENT DATE: 20240601
